FAERS Safety Report 5409443-0 (Version None)
Quarter: 2007Q3

REPORT INFORMATION
  Report Type: 
  Country: None (occurrence: None)
  Receive Date: 20070809
  Receipt Date: 20070803
  Transmission Date: 20080115
  Serious: Yes (Hospitalization)
  Sender: FDA-Public Use
  Company Number: SE-BAXTER-2007BH004117

PATIENT
  Sex: Male

DRUGS (14)
  1. EXTRANEAL [Suspect]
     Indication: RENAL FAILURE CHRONIC
     Route: 033
     Dates: start: 20070205
  2. PHYSIOSOL IN PLASTIC CONTAINER [Suspect]
     Indication: RENAL FAILURE CHRONIC
     Route: 033
     Dates: start: 20070205
  3. PHYSIOSOL IN PLASTIC CONTAINER [Suspect]
     Route: 033
     Dates: start: 20070205
  4. NUTRINEAL [Suspect]
     Indication: RENAL FAILURE CHRONIC
     Route: 033
     Dates: start: 20070205
  5. FURIX [Concomitant]
  6. LANTAN [Concomitant]
  7. VENOFER [Concomitant]
     Route: 042
  8. ANTIACID [Concomitant]
  9. METOPROLOL TARTRATE [Concomitant]
  10. ETALPHA [Concomitant]
  11. HUMALOG [Concomitant]
  12. SIMVASTATIN [Concomitant]
  13. NEORECORMON ^BOEHRINGER MANNHEIM^ [Concomitant]
  14. CINACALCEB [Concomitant]

REACTIONS (3)
  - CHILLS [None]
  - NAUSEA [None]
  - PERITONITIS [None]
